FAERS Safety Report 6138530-7 (Version None)
Quarter: 2009Q1

REPORT INFORMATION
  Report Type: 
  Country: None (occurrence: None)
  Receive Date: 20090327
  Receipt Date: 20090327
  Transmission Date: 20090719
  Serious: Yes (Other)
  Sender: FDA-Public Use
  Company Number: None

PATIENT

DRUGS (1)
  1. RECLAST [Suspect]
     Indication: DYSPEPSIA
     Dosage: 1 MG ONCE ANNUALLY

REACTIONS (14)
  - BACK PAIN [None]
  - BLOOD ELECTROLYTES DECREASED [None]
  - COUGH [None]
  - DIARRHOEA [None]
  - DYSGEUSIA [None]
  - GASTRIC DISORDER [None]
  - MALAISE [None]
  - NECK PAIN [None]
  - PAIN [None]
  - PAIN IN EXTREMITY [None]
  - PAIN IN JAW [None]
  - PYREXIA [None]
  - THROAT IRRITATION [None]
  - VOMITING [None]
